FAERS Safety Report 25822398 (Version 1)
Quarter: 2025Q3

REPORT INFORMATION
  Report Type: Spontaneous
  Country: US (occurrence: US)
  Receive Date: 20250919
  Receipt Date: 20250919
  Transmission Date: 20251021
  Serious: Yes (Hospitalization)
  Sender: CATALYST PHARMA
  Company Number: US-CATALYST PHARMACEUTICALS-US-CATA-25-01372

PATIENT
  Sex: Male
  Weight: 37.692 kg

DRUGS (4)
  1. AGAMREE [Suspect]
     Active Substance: VAMOROLONE
     Indication: Duchenne muscular dystrophy
     Dosage: 4.8 ML DAILY
     Dates: start: 20240418
  2. AGAMREE [Suspect]
     Active Substance: VAMOROLONE
     Dosage: 5 ML DAILY
     Dates: start: 20250505
  3. PREDNISONE [Concomitant]
     Active Substance: PREDNISONE
     Indication: Duchenne muscular dystrophy
     Dosage: 20MG TWICE WEEKLY
     Route: 065
  4. PREDNISONE [Concomitant]
     Active Substance: PREDNISONE
     Indication: Steroid therapy

REACTIONS (3)
  - Pneumothorax [Not Recovered/Not Resolved]
  - COVID-19 [Not Recovered/Not Resolved]
  - Pneumonia [Not Recovered/Not Resolved]

NARRATIVE: CASE EVENT DATE: 20250101
